FAERS Safety Report 25601580 (Version 1)
Quarter: 2025Q3

REPORT INFORMATION
  Report Type: Spontaneous
  Country: US (occurrence: US)
  Receive Date: 20250724
  Receipt Date: 20250724
  Transmission Date: 20251020
  Serious: Yes (Other)
  Sender: MYLAN
  Company Number: US-MYLANLABS-2025M1061819

PATIENT
  Age: 49 Year
  Sex: Female

DRUGS (12)
  1. VORICONAZOLE [Suspect]
     Active Substance: VORICONAZOLE
     Indication: Bronchopulmonary aspergillosis allergic
  2. VORICONAZOLE [Suspect]
     Active Substance: VORICONAZOLE
     Route: 065
  3. VORICONAZOLE [Suspect]
     Active Substance: VORICONAZOLE
     Route: 065
  4. VORICONAZOLE [Suspect]
     Active Substance: VORICONAZOLE
  5. ITRACONAZOLE [Suspect]
     Active Substance: ITRACONAZOLE
     Indication: Bronchopulmonary aspergillosis allergic
  6. ITRACONAZOLE [Suspect]
     Active Substance: ITRACONAZOLE
     Route: 065
  7. ITRACONAZOLE [Suspect]
     Active Substance: ITRACONAZOLE
     Route: 065
  8. ITRACONAZOLE [Suspect]
     Active Substance: ITRACONAZOLE
  9. ISAVUCONAZONIUM [Suspect]
     Active Substance: ISAVUCONAZONIUM
     Indication: Bronchopulmonary aspergillosis allergic
  10. ISAVUCONAZONIUM [Suspect]
     Active Substance: ISAVUCONAZONIUM
     Route: 065
  11. ISAVUCONAZONIUM [Suspect]
     Active Substance: ISAVUCONAZONIUM
     Route: 065
  12. ISAVUCONAZONIUM [Suspect]
     Active Substance: ISAVUCONAZONIUM

REACTIONS (1)
  - Drug ineffective [Unknown]
